FAERS Safety Report 10028378 (Version 2)
Quarter: 2014Q2

REPORT INFORMATION
  Report Type: Spontaneous
  Country: US (occurrence: US)
  Receive Date: 20140321
  Receipt Date: 20140515
  Transmission Date: 20141212
  Serious: Yes (Hospitalization)
  Sender: FDA-Public Use
  Company Number: US-GLAXOSMITHKLINE-B0978708A

PATIENT
  Age: 77 Year
  Sex: Male

DRUGS (1)
  1. ARZERRA [Suspect]
     Indication: CHRONIC LYMPHOCYTIC LEUKAEMIA
     Route: 042

REACTIONS (8)
  - Progressive multifocal leukoencephalopathy [Unknown]
  - Cognitive disorder [Unknown]
  - Visual impairment [Unknown]
  - Disorientation [Unknown]
  - Hemianopia homonymous [Unknown]
  - Alexia [Unknown]
  - Pancytopenia [Unknown]
  - Central nervous system lesion [Unknown]
